FAERS Safety Report 9314193 (Version 1)
Quarter: 2013Q2

REPORT INFORMATION
  Report Type: Spontaneous
  Country: US (occurrence: None)
  Receive Date: 20130524
  Receipt Date: 20130524
  Transmission Date: 20140414
  Serious: No
  Sender: FDA-Public Use
  Company Number: None

PATIENT
  Age: 52 Year
  Sex: Female
  Weight: 95.26 kg

DRUGS (1)
  1. LIPITOR [Suspect]
     Indication: BLOOD CHOLESTEROL INCREASED
     Dates: start: 201303

REACTIONS (6)
  - Muscle spasms [None]
  - Muscle spasms [None]
  - Trismus [None]
  - Abdominal pain upper [None]
  - Muscle spasms [None]
  - Muscle spasms [None]
